FAERS Safety Report 5108937-5 (Version None)
Quarter: 2006Q3

REPORT INFORMATION
  Report Type: 
  Country: None (occurrence: None)
  Receive Date: 20060918
  Receipt Date: 20060829
  Transmission Date: 20061208
  Serious: Yes (Death)
  Sender: FDA-Public Use
  Company Number: US200608006593

PATIENT
  Age: 79 Year
  Sex: Male

DRUGS (4)
  1. FORTEO [Suspect]
     Dates: start: 20040801, end: 20040901
  2. FORTEO [Concomitant]
  3. KEPPRA [Concomitant]
  4. MYSOLINE [Concomitant]

REACTIONS (3)
  - AORTIC VALVE INCOMPETENCE [None]
  - CHRONIC OBSTRUCTIVE PULMONARY DISEASE [None]
  - RESPIRATORY ARREST [None]
